FAERS Safety Report 12474965 (Version 1)
Quarter: 2016Q2

REPORT INFORMATION
  Report Type: Spontaneous
  Country: ES (occurrence: ES)
  Receive Date: 20160617
  Receipt Date: 20160617
  Transmission Date: 20160815
  Serious: Yes (Death, Hospitalization, Other)
  Sender: FDA-Public Use
  Company Number: ES-ACCORD-041583

PATIENT
  Age: 61 Year
  Sex: Male

DRUGS (2)
  1. CISPLATIN. [Suspect]
     Active Substance: CISPLATIN
     Indication: PRODUCT USED FOR UNKNOWN INDICATION
  2. GEMCITABINE/GEMCITABINE HYDROCHLORIDE [Suspect]
     Active Substance: GEMCITABINE\GEMCITABINE HYDROCHLORIDE
     Indication: PRODUCT USED FOR UNKNOWN INDICATION

REACTIONS (8)
  - Cardiac failure [Unknown]
  - Extremity necrosis [None]
  - Cyanosis [Not Recovered/Not Resolved]
  - Leukocytosis [Unknown]
  - Necrosis [Not Recovered/Not Resolved]
  - Renal failure [Unknown]
  - Respiratory failure [Fatal]
  - Anaemia [Unknown]
